FAERS Safety Report 5875311-3 (Version None)
Quarter: 2008Q3

REPORT INFORMATION
  Report Type: 
  Country: None (occurrence: None)
  Receive Date: 20080909
  Receipt Date: 20080903
  Transmission Date: 20090109
  Serious: Yes (Hospitalization, Other)
  Sender: FDA-Public Use
  Company Number: US-MERCK-0806USA01835

PATIENT
  Age: 67 Year
  Sex: Female

DRUGS (1)
  1. FOSAMAX [Suspect]
     Indication: OSTEOPOROSIS
     Route: 048
     Dates: start: 20030116, end: 20070816

REACTIONS (5)
  - BLOOD CHOLESTEROL INCREASED [None]
  - BLOOD DISORDER [None]
  - GASTROINTESTINAL DISORDER [None]
  - OSTEONECROSIS [None]
  - PERIODONTAL DISEASE [None]
